FAERS Safety Report 15602094 (Version 1)
Quarter: 2018Q4

REPORT INFORMATION
  Report Type: Spontaneous
  Country: US (occurrence: US)
  Receive Date: 20181108
  Receipt Date: 20181108
  Transmission Date: 20190205
  Serious: No
  Sender: FDA-Public Use
  Company Number: None

PATIENT
  Age: 71 Year
  Sex: Female
  Weight: 58.06 kg

DRUGS (1)
  1. PROLIA [Suspect]
     Active Substance: DENOSUMAB
     Indication: OSTEOPOROSIS
     Dosage: ?          OTHER FREQUENCY:6 MONTH ;OTHER ROUTE:INJECTION?
     Dates: start: 20170414, end: 20180514

REACTIONS (7)
  - Pain in jaw [None]
  - Hypoaesthesia oral [None]
  - Pharyngeal oedema [None]
  - Cough [None]
  - Fatigue [None]
  - Swollen tongue [None]
  - Neck pain [None]

NARRATIVE: CASE EVENT DATE: 20180628
